FAERS Safety Report 21582881 (Version 2)
Quarter: 2022Q4

REPORT INFORMATION
  Report Type: Spontaneous
  Country: US (occurrence: US)
  Receive Date: 20221111
  Receipt Date: 20221121
  Transmission Date: 20230113
  Serious: Yes (Death, Life-Threatening, Hospitalization, Other)
  Sender: FDA-Public Use
  Company Number: US-drreddys-SPO/USA/22/0157004

PATIENT
  Age: 42 Year
  Sex: Male

DRUGS (2)
  1. HEPARIN SODIUM [Suspect]
     Active Substance: HEPARIN SODIUM
     Indication: Pulmonary embolism
  2. HEPARIN SODIUM [Suspect]
     Active Substance: HEPARIN SODIUM

REACTIONS (2)
  - Cerebral haemorrhage [Fatal]
  - Subarachnoid haemorrhage [Fatal]
